FAERS Safety Report 13943059 (Version 1)
Quarter: 2017Q3

REPORT INFORMATION
  Report Type: Spontaneous
  Country: BR (occurrence: BR)
  Receive Date: 20170907
  Receipt Date: 20170907
  Transmission Date: 20171128
  Serious: Yes (Other)
  Sender: FDA-Public Use
  Company Number: BR-BIOMARINAP-BR-2017-115293

PATIENT
  Age: 9 Year
  Sex: Male
  Weight: 17 kg

DRUGS (2)
  1. ALDURAZYME [Suspect]
     Active Substance: LARONIDASE
     Indication: MUCOPOLYSACCHARIDOSIS I
     Dosage: UNK UNK, QOW
     Route: 041
     Dates: start: 20090501
  2. ALDURAZYME [Suspect]
     Active Substance: LARONIDASE
     Dosage: UNK, QW
     Route: 041

REACTIONS (3)
  - Tonsillar disorder [Unknown]
  - Respiratory disorder [Unknown]
  - Adenoidal disorder [Unknown]

NARRATIVE: CASE EVENT DATE: 2014
